FAERS Safety Report 6160473-3 (Version None)
Quarter: 2009Q2

REPORT INFORMATION
  Report Type: 
  Country: None (occurrence: None)
  Receive Date: 20090416
  Receipt Date: 20090413
  Transmission Date: 20091009
  Serious: Yes (Death, Life-Threatening, Disabling, Other)
  Sender: FDA-Public Use
  Company Number: 2007SP002214

PATIENT
  Age: 77 Year
  Sex: Male
  Weight: 75 kg

DRUGS (11)
  1. TEMODAL [Suspect]
     Indication: GLIOBLASTOMA MULTIFORME
     Dosage: 75 MG/M2; QD; PO
     Route: 048
     Dates: start: 20061121, end: 20070103
  2. FERON [Concomitant]
  3. MUCOSTA [Concomitant]
  4. GASTER [Concomitant]
  5. PRAVASTATIN SODIUM [Concomitant]
  6. AMLODIPINE [Concomitant]
  7. NU-LOTAN [Concomitant]
  8. EXCEGRAN [Concomitant]
  9. GLYCYRON [Concomitant]
  10. URINORM [Concomitant]
  11. MAGNESIUM OXIDE [Concomitant]

REACTIONS (8)
  - BLOOD UREA INCREASED [None]
  - GENERAL PHYSICAL HEALTH DETERIORATION [None]
  - HYPOKALAEMIA [None]
  - LYMPHOCYTE COUNT DECREASED [None]
  - PLATELET COUNT DECREASED [None]
  - RED BLOOD CELL COUNT DECREASED [None]
  - SEPSIS [None]
  - WHITE BLOOD CELL COUNT DECREASED [None]
